FAERS Safety Report 7649193-3 (Version None)
Quarter: 2011Q3

REPORT INFORMATION
  Report Type: 
  Country: None (occurrence: None)
  Receive Date: 20110726
  Receipt Date: 20110712
  Transmission Date: 20111222
  Serious: Yes (Other)
  Sender: FDA-Public Use
  Company Number: ALK_01785_2011

PATIENT
  Sex: Female
  Weight: 52.6173 kg

DRUGS (1)
  1. VIVITROL [Suspect]
     Indication: DRUG DEPENDENCE
     Dosage: (380 MG 1X/MONTH INTRAMUSCULAR)
     Route: 030
     Dates: start: 20110620

REACTIONS (3)
  - DRUG DEPENDENCE [None]
  - SUICIDAL IDEATION [None]
  - HOMICIDAL IDEATION [None]
